FAERS Safety Report 7831241-9 (Version None)
Quarter: 2011Q4

REPORT INFORMATION
  Report Type: 
  Country: None (occurrence: None)
  Receive Date: 20111021
  Receipt Date: 20111019
  Transmission Date: 20120403
  Serious: Yes (Hospitalization)
  Sender: FDA-Public Use
  Company Number: JP-ROCHE-763618

PATIENT
  Age: 10 Year
  Sex: Male
  Weight: 45.2 kg

DRUGS (4)
  1. ROCEPHIN [Suspect]
     Indication: ENTEROCOLITIS BACTERIAL
     Dosage: DRUG NAME REPORTED AS ROCEPHIN 1G BAG(CEFTRIAXONE
     Route: 041
     Dates: start: 20110113, end: 20110115
  2. CEFOTIAM HYDROCHLORIDE [Suspect]
     Indication: ENTEROCOLITIS BACTERIAL
     Route: 041
     Dates: start: 20110112, end: 20110113
  3. CLARITHROMYCIN [Concomitant]
     Dosage: DOSE FORM: PERORAL AGENT,NOTE: DOSAGE IS UNCERTAIN
     Route: 048
     Dates: start: 20110107, end: 20110112
  4. FLOMOX [Concomitant]
     Dosage: DOSE FORM: PERORAL AGENT, NOTE: DOSAGE IS UNCERTAIN
     Route: 048
     Dates: start: 20110107, end: 20110112

REACTIONS (2)
  - RENAL FAILURE ACUTE [None]
  - TUBULOINTERSTITIAL NEPHRITIS [None]
